FAERS Safety Report 7742544-0 (Version None)
Quarter: 2011Q3

REPORT INFORMATION
  Report Type: 
  Country: None (occurrence: None)
  Receive Date: 20110908
  Receipt Date: 20110908
  Transmission Date: 20111222
  Serious: Yes (Hospitalization)
  Sender: FDA-Public Use
  Company Number: None

PATIENT
  Age: 61 Year
  Sex: Male
  Weight: 93.4 kg

DRUGS (1)
  1. IBUPROFEN [Suspect]
     Dosage: 800 MG BID PO
     Route: 048
     Dates: start: 20110201, end: 20110805

REACTIONS (7)
  - UNRESPONSIVE TO STIMULI [None]
  - SOMNOLENCE [None]
  - MIOSIS [None]
  - OXYGEN SATURATION DECREASED [None]
  - MUSCLE TWITCHING [None]
  - RENAL FAILURE ACUTE [None]
  - SYNCOPE [None]
